FAERS Safety Report 17787035 (Version 2)
Quarter: 2020Q2

REPORT INFORMATION
  Report Type: Report from Study
  Country: FR (occurrence: FR)
  Receive Date: 20200514
  Receipt Date: 20200604
  Transmission Date: 20200714
  Serious: Yes (Hospitalization, Other)
  Sender: FDA-Public Use
  Company Number: FR-SAMSUNG BIOEPIS-SB-2020-14889

PATIENT
  Age: 20 Year
  Sex: Female
  Weight: 50 kg

DRUGS (8)
  1. FLIXABI [Suspect]
     Active Substance: INFLIXIMAB
     Route: 065
  2. FLIXABI [Suspect]
     Active Substance: INFLIXIMAB
     Route: 065
  3. PARACETAMOL [Concomitant]
     Active Substance: ACETAMINOPHEN
     Indication: PRODUCT USED FOR UNKNOWN INDICATION
     Dosage: UNKNOWN, AS NEEDED
     Route: 065
  4. MICROLAX [Concomitant]
     Indication: PRODUCT USED FOR UNKNOWN INDICATION
     Dosage: UNKNOWN, AS NEEDED
     Route: 065
  5. PNEUMOCOCCAL VACCINE POLYVALENT NOS [Concomitant]
     Active Substance: PNEUMOCOCCAL VACCINE POLYVALENT
     Indication: PRODUCT USED FOR UNKNOWN INDICATION
     Dosage: UNKNOWN
     Route: 065
     Dates: start: 2018
  6. FLIXABI [Suspect]
     Active Substance: INFLIXIMAB
     Indication: CROHN^S DISEASE
     Route: 042
     Dates: start: 20180525
  7. SPASFON [PHLOROGLUCINOL;TRIMETHYLPHLOROGLUCINOL] [Concomitant]
     Active Substance: PHLOROGLUCINOL\1,3,5-TRIMETHOXYBENZENE
     Indication: PRODUCT USED FOR UNKNOWN INDICATION
     Dosage: UNKNOWN, AS NEEDED
     Route: 065
  8. FERINJECT [Concomitant]
     Active Substance: FERRIC CARBOXYMALTOSE
     Indication: PRODUCT USED FOR UNKNOWN INDICATION
     Route: 065
     Dates: start: 20190916

REACTIONS (18)
  - Gastroenteritis [Unknown]
  - Ageusia [Unknown]
  - Productive cough [Unknown]
  - Abdominal pain [Unknown]
  - Gastrectomy [Recovered/Resolved]
  - Product use issue [Unknown]
  - Renal cyst [Unknown]
  - Suspected COVID-19 [Unknown]
  - Diarrhoea [Unknown]
  - Cough [Unknown]
  - Lipomatosis [Unknown]
  - Haemoperitoneum [Unknown]
  - Rectal haemorrhage [Unknown]
  - Asthenia [Unknown]
  - Anosmia [Unknown]
  - Headache [Unknown]
  - Respiratory symptom [Recovered/Resolved]
  - Fatigue [Unknown]

NARRATIVE: CASE EVENT DATE: 20181215
